FAERS Safety Report 15584914 (Version 1)
Quarter: 2018Q4

REPORT INFORMATION
  Report Type: Spontaneous
  Country: US (occurrence: US)
  Receive Date: 20181102
  Receipt Date: 20181102
  Transmission Date: 20190205
  Serious: Yes (Hospitalization)
  Sender: FDA-Public Use
  Company Number: US-PFIZER INC-2018453076

PATIENT
  Age: 55 Year
  Sex: Male
  Weight: 124.7 kg

DRUGS (4)
  1. LIPITOR [Suspect]
     Active Substance: ATORVASTATIN CALCIUM
     Dosage: 20 MG, UNK
  2. LIPITOR [Suspect]
     Active Substance: ATORVASTATIN CALCIUM
     Dosage: 10 MG, DAILY
     Route: 048
  3. LIPITOR [Suspect]
     Active Substance: ATORVASTATIN CALCIUM
     Dosage: 30 MG, UNK
  4. LIPITOR [Suspect]
     Active Substance: ATORVASTATIN CALCIUM
     Indication: BLOOD CHOLESTEROL
     Dosage: 40 MG, UNK

REACTIONS (7)
  - Limb injury [Unknown]
  - Road traffic accident [Recovered/Resolved with Sequelae]
  - Clavicle fracture [Unknown]
  - Tendon rupture [Unknown]
  - Weight decreased [Recovering/Resolving]
  - Sternal fracture [Unknown]
  - Back injury [Unknown]

NARRATIVE: CASE EVENT DATE: 2012
